FAERS Safety Report 16871007 (Version 3)
Quarter: 2020Q4

REPORT INFORMATION
  Report Type: Report from Study
  Country: US (occurrence: US)
  Receive Date: 20190930
  Receipt Date: 20201229
  Transmission Date: 20210113
  Serious: No
  Sender: FDA-Public Use
  Company Number: US-CLOVIS ONCOLOGY-CLO-2019-001802

PATIENT
  Sex: Female

DRUGS (1)
  1. RUBRACA [Suspect]
     Active Substance: RUCAPARIB CAMSYLATE
     Indication: OVARIAN CANCER
     Dosage: 600 MG, BID
     Route: 048
     Dates: start: 20190831

REACTIONS (10)
  - Abdominal distension [Unknown]
  - Taste disorder [Recovering/Resolving]
  - Platelet count decreased [Unknown]
  - Fatigue [Unknown]
  - Skin haemorrhage [Unknown]
  - Pain in extremity [Recovered/Resolved]
  - Peripheral swelling [Not Recovered/Not Resolved]
  - Pruritus [Recovered/Resolved]
  - Nausea [Recovered/Resolved]
  - Pruritus [Recovered/Resolved]

NARRATIVE: CASE EVENT DATE: 2019
